FAERS Safety Report 7578159-7 (Version None)
Quarter: 2011Q2

REPORT INFORMATION
  Report Type: 
  Country: None (occurrence: None)
  Receive Date: 20110628
  Receipt Date: 20110624
  Transmission Date: 20111010
  Serious: Yes (Hospitalization)
  Sender: FDA-Public Use
  Company Number: A0927618A

PATIENT
  Age: 79 Year
  Sex: Female

DRUGS (11)
  1. ALBUTEROL [Concomitant]
  2. ADVAIR DISKUS 100/50 [Concomitant]
  3. DIGOXIN [Concomitant]
  4. CARDIZEM [Concomitant]
  5. COUMADIN [Concomitant]
  6. PROAIR HFA [Concomitant]
  7. UNKNOWN [Concomitant]
  8. PROMACTA [Suspect]
     Indication: IDIOPATHIC THROMBOCYTOPENIC PURPURA
     Dosage: 25MG PER DAY
     Route: 048
     Dates: start: 20110222
  9. HYDROCHLOROTHIAZIDE [Concomitant]
  10. LOVASTATIN [Concomitant]
  11. VENTOLIN HFA [Concomitant]

REACTIONS (10)
  - PNEUMONIA [None]
  - NAUSEA [None]
  - WEIGHT DECREASED [None]
  - HYPOTENSION [None]
  - JOINT SWELLING [None]
  - EYE PAIN [None]
  - ABNORMAL FAECES [None]
  - OCULAR HYPERAEMIA [None]
  - LUNG DISORDER [None]
  - PULMONARY THROMBOSIS [None]
